FAERS Safety Report 15610994 (Version 1)
Quarter: 2018Q4

REPORT INFORMATION
  Report Type: Spontaneous
  Country: US (occurrence: US)
  Receive Date: 20181113
  Receipt Date: 20181113
  Transmission Date: 20190205
  Serious: No
  Sender: FDA-Public Use
  Company Number: US-ROCHE-2090951

PATIENT
  Sex: Female
  Weight: 65.83 kg

DRUGS (2)
  1. HERCEPTIN [Suspect]
     Active Substance: TRASTUZUMAB
     Dosage: ONGOING:NO
     Route: 042
     Dates: start: 201705
  2. HERCEPTIN [Suspect]
     Active Substance: TRASTUZUMAB
     Indication: BREAST CANCER
     Dosage: EVERY THREE WEEKS ;ONGOING: YES
     Route: 042

REACTIONS (4)
  - Chills [Recovered/Resolved]
  - Malaise [Recovered/Resolved]
  - Influenza like illness [Recovered/Resolved]
  - Pain [Recovered/Resolved]
